FAERS Safety Report 11115216 (Version 1)
Quarter: 2015Q2

REPORT INFORMATION
  Report Type: Spontaneous
  Country: ES (occurrence: ES)
  Receive Date: 20150515
  Receipt Date: 20150515
  Transmission Date: 20150821
  Serious: Yes (Hospitalization)
  Sender: FDA-Public Use
  Company Number: ES-JNJFOC-20150501405

PATIENT
  Age: 57 Year
  Sex: Male

DRUGS (1)
  1. USTEKINUMAB [Suspect]
     Active Substance: USTEKINUMAB
     Indication: PSORIASIS
     Dosage: AT WEEKS 0, 4 AND 12 WEEKS
     Route: 058

REACTIONS (3)
  - Congestive cardiomyopathy [Recovering/Resolving]
  - Atrial fibrillation [Recovering/Resolving]
  - Bundle branch block left [Recovering/Resolving]
